FAERS Safety Report 5584234-9 (Version None)
Quarter: 2008Q1

REPORT INFORMATION
  Report Type: 
  Country: None (occurrence: None)
  Receive Date: 20080108
  Receipt Date: 20080102
  Transmission Date: 20080703
  Serious: Yes (Hospitalization, Congenital Anomaly)
  Sender: FDA-Public Use
  Company Number: A0678473A

PATIENT
  Sex: Male
  Weight: 3.2 kg

DRUGS (14)
  1. PAXIL [Suspect]
     Indication: STRESS
     Dates: start: 20020701, end: 20060501
  2. PAXIL CR [Suspect]
     Indication: DEPRESSION
     Dosage: 12.5MG PER DAY
     Dates: start: 20030101
  3. PAROXETINE HCL [Suspect]
     Indication: DEPRESSION
     Dosage: 20MG UNKNOWN
     Dates: start: 20040101
  4. PRENATAL VITAMINS [Concomitant]
  5. PROTONIX [Concomitant]
  6. ZITHROMAX [Concomitant]
     Dates: start: 20050601
  7. TYLENOL [Concomitant]
  8. INTRAVENOUS FLUIDS [Concomitant]
     Dates: start: 20050401, end: 20050401
  9. PHENERGAN HCL [Concomitant]
     Dates: start: 20050401, end: 20050401
  10. STADOL [Concomitant]
     Dates: start: 20050401, end: 20050401
  11. LORTAB [Concomitant]
     Dates: start: 20050501
  12. PREVACID [Concomitant]
  13. REGLAN [Concomitant]
  14. CARAFATE [Concomitant]
     Dates: start: 20050701

REACTIONS (8)
  - ATRIAL SEPTAL DEFECT [None]
  - CAESAREAN SECTION [None]
  - CARDIAC DISORDER [None]
  - DRUG EXPOSURE DURING PREGNANCY [None]
  - PATENT DUCTUS ARTERIOSUS [None]
  - PERSISTENT FOETAL CIRCULATION [None]
  - PREMATURE BABY [None]
  - VENTRICULAR SEPTAL DEFECT [None]
